FAERS Safety Report 10227106 (Version 2)
Quarter: 2014Q2

REPORT INFORMATION
  Report Type: Spontaneous
  Country: JP (occurrence: JP)
  Receive Date: 20140610
  Receipt Date: 20140610
  Transmission Date: 20141212
  Serious: Yes (Hospitalization)
  Sender: FDA-Public Use
  Company Number: JP-ROCHE-1384329

PATIENT
  Age: 68 Year
  Sex: Female
  Weight: 46 kg

DRUGS (11)
  1. HERCEPTIN [Suspect]
     Indication: BREAST CANCER RECURRENT
     Route: 041
     Dates: start: 20140326, end: 20140326
  2. PERJETA [Suspect]
     Indication: BREAST CANCER RECURRENT
     Dosage: 420MG/14 ML
     Route: 041
     Dates: start: 20140326, end: 20140326
  3. CALONAL [Concomitant]
     Indication: BREAST CANCER
     Route: 048
     Dates: start: 20140312
  4. MAGMITT [Concomitant]
     Indication: CONSTIPATION
     Route: 048
     Dates: start: 20140318
  5. PICOBEN [Concomitant]
     Indication: CONSTIPATION
     Route: 048
     Dates: start: 20140318
  6. TEPRENONE [Concomitant]
     Indication: GASTRITIS PROPHYLAXIS
     Route: 048
     Dates: start: 20140318
  7. NOVAMIN (JAPAN) [Concomitant]
     Indication: PROPHYLAXIS
     Route: 048
     Dates: start: 20140318
  8. OXYCONTIN [Concomitant]
     Indication: CANCER PAIN
     Route: 048
     Dates: start: 20140318, end: 20140321
  9. OXYCONTIN [Concomitant]
     Indication: CANCER PAIN
     Route: 048
     Dates: start: 20140322
  10. DICLOFENAC SODIUM [Concomitant]
     Indication: CANCER PAIN
     Route: 054
     Dates: start: 20140313
  11. DOCETAXEL [Concomitant]
     Indication: BREAST CANCER RECURRENT
     Dosage: DOSAGE IS UNCERTAIN.
     Route: 041

REACTIONS (1)
  - Acute pulmonary oedema [Recovered/Resolved]
